FAERS Safety Report 4813429-4 (Version None)
Quarter: 2005Q4

REPORT INFORMATION
  Report Type: 
  Country: None (occurrence: None)
  Receive Date: 20051028
  Receipt Date: 20050209
  Transmission Date: 20060501
  Serious: No
  Sender: FDA-Public Use
  Company Number: US-GLAXOSMITHKLINE-A0544780A

PATIENT
  Age: 8 Year
  Sex: Male

DRUGS (2)
  1. ADVAIR DISKUS 100/50 [Suspect]
     Indication: POSTNASAL DRIP
     Dosage: 1PUFF TWICE PER DAY
     Route: 055
     Dates: start: 20050129, end: 20050204
  2. NO CONCURRENT MEDICATION [Concomitant]

REACTIONS (6)
  - ABASIA [None]
  - ANOREXIA [None]
  - ARTHRALGIA [None]
  - DYSSTASIA [None]
  - PAIN IN EXTREMITY [None]
  - WEIGHT DECREASED [None]
